FAERS Safety Report 16396860 (Version 1)
Quarter: 2019Q2

REPORT INFORMATION
  Report Type: Other
  Country: DE (occurrence: DE)
  Receive Date: 20190606
  Receipt Date: 20190606
  Transmission Date: 20190711
  Serious: No
  Sender: FDA-Public Use
  Company Number: DE-LUPIN PHARMACEUTICALS INC.-2018-03461

PATIENT
  Sex: Female

DRUGS (1)
  1. DESLORATADINE. [Suspect]
     Active Substance: DESLORATADINE
     Indication: PRODUCT USED FOR UNKNOWN INDICATION
     Dosage: 5 MG, UNK
     Route: 065

REACTIONS (3)
  - Abdominal pain upper [Unknown]
  - Sleep disorder [Unknown]
  - Gastrointestinal pain [Unknown]
